FAERS Safety Report 7199387-9 (Version None)
Quarter: 2010Q4

REPORT INFORMATION
  Report Type: 
  Country: None (occurrence: None)
  Receive Date: 20101215
  Receipt Date: 20101203
  Transmission Date: 20110411
  Serious: Yes (Hospitalization)
  Sender: FDA-Public Use
  Company Number: UTC-003010

PATIENT
  Age: 59 Year
  Sex: Female
  Weight: 126.8 kg

DRUGS (3)
  1. REMODULIN [Suspect]
     Indication: PULMONARY ARTERIAL HYPERTENSION
     Dosage: 24.48 UG/KG (0.017 UG/KG,1 IN 1 MIN),INTRAVENOUS
     Route: 042
     Dates: start: 20101105
  2. ADCIRA (TADALAFIL) [Concomitant]
  3. DIURETICS (DIURETICS) [Concomitant]

REACTIONS (5)
  - CELLULITIS [None]
  - HAEMOGLOBIN DECREASED [None]
  - HAEMORRHAGE [None]
  - HEADACHE [None]
  - NAUSEA [None]
